FAERS Safety Report 12410707 (Version 1)
Quarter: 2016Q2

REPORT INFORMATION
  Report Type: Spontaneous
  Country: US (occurrence: US)
  Receive Date: 20160527
  Receipt Date: 20160527
  Transmission Date: 20160815
  Serious: Yes (Other)
  Sender: FDA-Public Use
  Company Number: US-BRISTOL-MYERS SQUIBB COMPANY-BMS-2016-040131

PATIENT
  Sex: Male
  Weight: 72.56 kg

DRUGS (2)
  1. OPDIVO [Suspect]
     Active Substance: NIVOLUMAB
     Indication: NON-SMALL CELL LUNG CANCER
     Dosage: 223 MG, Q2WK
     Route: 042
  2. HYDROCORTISONE                     /00028602/ [Concomitant]
     Active Substance: HYDROCORTISONE
     Indication: PRODUCT USED FOR UNKNOWN INDICATION
     Dosage: 30 MG, Q2WK
     Route: 065

REACTIONS (4)
  - Diarrhoea [Unknown]
  - Dehydration [Unknown]
  - Abdominal discomfort [Unknown]
  - Asthenia [Unknown]
